FAERS Safety Report 4883403-0 (Version None)
Quarter: 2006Q1

REPORT INFORMATION
  Report Type: 
  Country: None (occurrence: None)
  Receive Date: 20060117
  Receipt Date: 20060117
  Transmission Date: 20060701
  Serious: Yes (Hospitalization)
  Sender: FDA-Public Use
  Company Number: None

PATIENT
  Age: 52 Year
  Sex: Male
  Weight: 68.0396 kg

DRUGS (1)
  1. SUDAFED (SHOWER SOOTHERS) [Suspect]
     Dosage: 1 TABLET IN SHOWER
     Dates: start: 20051021, end: 20051021

REACTIONS (2)
  - COUGH [None]
  - MALAISE [None]
